FAERS Safety Report 9384011 (Version 1)
Quarter: 2013Q3

REPORT INFORMATION
  Report Type: Spontaneous
  Country: US (occurrence: US)
  Receive Date: 20130705
  Receipt Date: 20130705
  Transmission Date: 20140515
  Serious: No
  Sender: FDA-Public Use
  Company Number: US-B.I. PHARMACEUTICALS,INC./RIDGEFIELD-2013-BI-18956BP

PATIENT
  Age: 79 Year
  Sex: Female
  Weight: 74 kg

DRUGS (1)
  1. SPIRIVA [Suspect]
     Indication: ATRIAL FIBRILLATION
     Dosage: 18 MCG
     Route: 055
     Dates: start: 201208

REACTIONS (1)
  - Incorrect route of drug administration [Recovered/Resolved]
